FAERS Safety Report 7491579-4 (Version None)
Quarter: 2011Q2

REPORT INFORMATION
  Report Type: 
  Country: None (occurrence: None)
  Receive Date: 20110519
  Receipt Date: 20110511
  Transmission Date: 20111010
  Serious: Yes (Life-Threatening, Other)
  Sender: FDA-Public Use
  Company Number: JP-JNJFOC-20110408314

PATIENT
  Sex: Male

DRUGS (12)
  1. CARVEDILOL [Concomitant]
     Route: 048
  2. SIGMART [Concomitant]
     Route: 048
  3. WARFARIN SODIUM [Concomitant]
     Route: 048
  4. ASPIRIN [Concomitant]
     Route: 048
  5. MUCODYNE [Suspect]
     Indication: BRONCHITIS
     Route: 048
     Dates: start: 20110404, end: 20110405
  6. AMLODIPINE [Concomitant]
     Route: 048
  7. HUMULIN 3/7 [Concomitant]
     Route: 048
  8. DORIPENEM MONOHYDRATE [Suspect]
     Indication: PNEUMONIA
     Route: 041
     Dates: start: 20110405, end: 20110405
  9. TERSIGAN [Suspect]
     Indication: BRONCHITIS
     Route: 055
     Dates: start: 20110404, end: 20110405
  10. AMIODARONE HCL [Concomitant]
     Route: 048
     Dates: end: 20110405
  11. LUPRAC [Concomitant]
     Route: 048
  12. RENIVACE [Concomitant]
     Route: 048

REACTIONS (3)
  - HEPATIC ENZYME INCREASED [None]
  - CARDIAC FAILURE [None]
  - RESPIRATORY FAILURE [None]
